FAERS Safety Report 7130667-9 (Version None)
Quarter: 2010Q4

REPORT INFORMATION
  Report Type: 
  Country: None (occurrence: None)
  Receive Date: 20101201
  Receipt Date: 20101122
  Transmission Date: 20110411
  Serious: Yes (Death, Hospitalization)
  Sender: FDA-Public Use
  Company Number: US-SANOFI-AVENTIS-2010SA070795

PATIENT
  Age: 89 Year
  Sex: Female

DRUGS (1)
  1. LOVENOX [Suspect]
     Route: 058
     Dates: start: 20101102, end: 20101104

REACTIONS (1)
  - RESPIRATORY FAILURE [None]
